FAERS Safety Report 10304914 (Version 1)
Quarter: 2014Q3

REPORT INFORMATION
  Report Type: Spontaneous
  Country: US (occurrence: None)
  Receive Date: 20140710
  Receipt Date: 20140710
  Transmission Date: 20150326
  Serious: Yes (Disabling)
  Sender: FDA-Public Use
  Company Number: None

PATIENT
  Age: 36 Year
  Sex: Male
  Weight: 88.45 kg

DRUGS (1)
  1. TRAMADOL [Suspect]
     Active Substance: TRAMADOL
     Indication: RHEUMATOID ARTHRITIS
     Dosage: 2 PILLS, THREE TIMES DAILY, TAKEN BY MOUTH
     Route: 048

REACTIONS (2)
  - Dental caries [None]
  - Tooth extraction [None]

NARRATIVE: CASE EVENT DATE: 20100714
